FAERS Safety Report 17447925 (Version 1)
Quarter: 2020Q1

REPORT INFORMATION
  Report Type: Report from Study
  Country: CO (occurrence: CO)
  Receive Date: 20200222
  Receipt Date: 20200222
  Transmission Date: 20200409
  Serious: Yes (Hospitalization)
  Sender: FDA-Public Use
  Company Number: CO-ROCHE-2481126

PATIENT
  Sex: Female

DRUGS (1)
  1. RITUXIMAB. [Suspect]
     Active Substance: RITUXIMAB
     Indication: PRODUCT USED FOR UNKNOWN INDICATION
     Route: 065

REACTIONS (7)
  - Back pain [Recovering/Resolving]
  - General physical health deterioration [Unknown]
  - Malaise [Unknown]
  - Musculoskeletal pain [Unknown]
  - Chills [Unknown]
  - Tremor [Unknown]
  - Intervertebral disc disorder [Unknown]
